FAERS Safety Report 21158263 (Version 1)
Quarter: 2022Q3

REPORT INFORMATION
  Report Type: Report from Study
  Country: CA (occurrence: CA)
  Receive Date: 20220801
  Receipt Date: 20220801
  Transmission Date: 20221027
  Serious: Yes (Hospitalization, Other)
  Sender: FDA-Public Use
  Company Number: CA-GILEAD-2022-0589325

PATIENT
  Age: 52 Year
  Sex: Female

DRUGS (5)
  1. SACITUZUMAB GOVITECAN [Suspect]
     Active Substance: SACITUZUMAB GOVITECAN
     Indication: Triple negative breast cancer
     Dosage: 603 MG
     Route: 042
     Dates: start: 20220307, end: 20220718
  2. CAPECITABINE [Concomitant]
     Active Substance: CAPECITABINE
  3. GEMCITABINE [Concomitant]
     Active Substance: GEMCITABINE
  4. LYNPARZA [Concomitant]
     Active Substance: OLAPARIB
  5. FEC D [Concomitant]

REACTIONS (2)
  - Disease progression [Unknown]
  - Inappropriate schedule of product administration [Unknown]

NARRATIVE: CASE EVENT DATE: 20220718
